FAERS Safety Report 21240149 (Version 1)
Quarter: 2022Q3

REPORT INFORMATION
  Report Type: Spontaneous
  Country: US (occurrence: None)
  Receive Date: 20220819
  Receipt Date: 20220819
  Transmission Date: 20221027
  Serious: Yes (Other)
  Sender: FDA-Public Use
  Company Number: None

PATIENT
  Sex: Female

DRUGS (1)
  1. CAPECITABINE [Suspect]
     Active Substance: CAPECITABINE
     Dosage: 1500MG BID ORAL
     Route: 048

REACTIONS (9)
  - Diarrhoea [None]
  - Nausea [None]
  - Abdominal pain [None]
  - Flatulence [None]
  - Diabetic neuropathy [None]
  - Oral discomfort [None]
  - Decreased appetite [None]
  - Dyspnoea exertional [None]
  - Blood glucose decreased [None]
